FAERS Safety Report 5115255-8 (Version None)
Quarter: 2006Q3

REPORT INFORMATION
  Report Type: 
  Country: None (occurrence: None)
  Receive Date: 20060926
  Receipt Date: 20030923
  Transmission Date: 20061208
  Serious: Yes (Death, Hospitalization)
  Sender: FDA-Public Use
  Company Number: GB-ABBOTT-03P-167-0234834-00

PATIENT
  Age: 12 Year
  Sex: Female

DRUGS (2)
  1. EPILIM [Suspect]
     Indication: TEMPORAL LOBE EPILEPSY
     Dates: start: 19770101, end: 19780414
  2. EPILIM [Suspect]

REACTIONS (5)
  - COMA [None]
  - DELIRIUM [None]
  - FALL [None]
  - HYPERAMMONAEMIA [None]
  - MULTI-ORGAN FAILURE [None]
